FAERS Safety Report 24926794 (Version 2)
Quarter: 2025Q1

REPORT INFORMATION
  Report Type: Report from Study
  Country: CO (occurrence: CO)
  Receive Date: 20250205
  Receipt Date: 20250304
  Transmission Date: 20250408
  Serious: Yes (Hospitalization)
  Sender: TAKEDA
  Company Number: CO-TAKEDA-2023TUS095640

PATIENT
  Age: 28 Year
  Sex: Female
  Weight: 60 kg

DRUGS (1)
  1. HUMAN IMMUNOGLOBULIN G [Suspect]
     Active Substance: HUMAN IMMUNOGLOBULIN G
     Indication: Primary immunodeficiency syndrome
     Dosage: 40 GRAM, Q4WEEKS
     Dates: start: 20230908

REACTIONS (8)
  - Mumps [Unknown]
  - Bronchitis [Recovering/Resolving]
  - Weight decreased [Unknown]
  - Sinusitis [Recovering/Resolving]
  - Inappropriate schedule of product administration [Unknown]
  - Treatment noncompliance [Unknown]
  - Product dose omission issue [Unknown]
  - Influenza [Not Recovered/Not Resolved]

NARRATIVE: CASE EVENT DATE: 20230917
